FAERS Safety Report 11598937 (Version 2)
Quarter: 2015Q4

REPORT INFORMATION
  Report Type: Spontaneous
  Country: US (occurrence: US)
  Receive Date: 20151006
  Receipt Date: 20151012
  Transmission Date: 20160304
  Serious: No
  Sender: FDA-Public Use
  Company Number: US-BAYER-2015-437527

PATIENT
  Age: 44 Year
  Sex: Male
  Weight: 61.22 kg

DRUGS (9)
  1. CLARITIN [Suspect]
     Active Substance: LORATADINE
     Dosage: 2 DF, ONCE
     Dates: start: 20151001, end: 20151001
  2. PHENOBARBITAL [PHENOBARBITAL] [Concomitant]
     Dosage: UNK
  3. ASTELIN [AZELASTINE HYDROCHLORIDE] [Concomitant]
     Active Substance: AZELASTINE HYDROCHLORIDE
     Dosage: UNK
  4. FLUTICASONE PROPIONATE. [Concomitant]
     Active Substance: FLUTICASONE PROPIONATE
     Dosage: UNK
  5. ALLERGY SHOTS [Concomitant]
     Active Substance: UNSPECIFIED INGREDIENT
  6. LINZESS [Concomitant]
     Active Substance: LINACLOTIDE
  7. CLARITIN [Suspect]
     Active Substance: LORATADINE
     Dosage: UNK
  8. NEXIUM [Concomitant]
     Active Substance: ESOMEPRAZOLE MAGNESIUM
  9. PHAZYME [Concomitant]
     Active Substance: DIMETHICONE 410
     Dosage: UNK

REACTIONS (2)
  - Incorrect dose administered [Unknown]
  - Somnolence [None]

NARRATIVE: CASE EVENT DATE: 20151001
